FAERS Safety Report 25204247 (Version 1)
Quarter: 2025Q2

REPORT INFORMATION
  Report Type: Spontaneous
  Country: FR (occurrence: FR)
  Receive Date: 20250416
  Receipt Date: 20250416
  Transmission Date: 20250716
  Serious: Yes (Other)
  Sender: MYLAN
  Company Number: None

PATIENT
  Age: 26 Year
  Sex: Male

DRUGS (12)
  1. LYRICA [Suspect]
     Active Substance: PREGABALIN
     Indication: Product used for unknown indication
     Dosage: 5 DOSAGE FORM, QD (1 TO 5 LYRICA 300 MG CAPSULES PER DAY)
     Dates: end: 20241122
  2. LYRICA [Suspect]
     Active Substance: PREGABALIN
     Dosage: 5 DOSAGE FORM, QD (1 TO 5 LYRICA 300 MG CAPSULES PER DAY)
     Route: 048
     Dates: end: 20241122
  3. LYRICA [Suspect]
     Active Substance: PREGABALIN
     Dosage: 5 DOSAGE FORM, QD (1 TO 5 LYRICA 300 MG CAPSULES PER DAY)
     Route: 048
     Dates: end: 20241122
  4. LYRICA [Suspect]
     Active Substance: PREGABALIN
     Dosage: 5 DOSAGE FORM, QD (1 TO 5 LYRICA 300 MG CAPSULES PER DAY)
     Dates: end: 20241122
  5. RIVOTRIL [Suspect]
     Active Substance: CLONAZEPAM
     Indication: Product used for unknown indication
  6. RIVOTRIL [Suspect]
     Active Substance: CLONAZEPAM
     Route: 065
  7. RIVOTRIL [Suspect]
     Active Substance: CLONAZEPAM
     Route: 065
  8. RIVOTRIL [Suspect]
     Active Substance: CLONAZEPAM
  9. CANNABIS SATIVA SUBSP. INDICA TOP [Suspect]
     Active Substance: CANNABIS SATIVA SUBSP. INDICA TOP
     Indication: Product used for unknown indication
  10. CANNABIS SATIVA SUBSP. INDICA TOP [Suspect]
     Active Substance: CANNABIS SATIVA SUBSP. INDICA TOP
     Route: 055
  11. CANNABIS SATIVA SUBSP. INDICA TOP [Suspect]
     Active Substance: CANNABIS SATIVA SUBSP. INDICA TOP
     Route: 055
  12. CANNABIS SATIVA SUBSP. INDICA TOP [Suspect]
     Active Substance: CANNABIS SATIVA SUBSP. INDICA TOP

REACTIONS (4)
  - Substance abuse [Unknown]
  - Somnolence [Recovered/Resolved]
  - Mydriasis [Recovered/Resolved]
  - Hypotension [Recovered/Resolved]

NARRATIVE: CASE EVENT DATE: 20241123
